FAERS Safety Report 14647434 (Version 2)
Quarter: 2018Q2

REPORT INFORMATION
  Report Type: Spontaneous
  Country: US (occurrence: US)
  Receive Date: 20180316
  Receipt Date: 20180605
  Transmission Date: 20180711
  Serious: No
  Sender: FDA-Public Use
  Company Number: US-PFIZER INC-2018108126

PATIENT
  Age: 60 Year
  Sex: Male

DRUGS (1)
  1. EUCRISA [Suspect]
     Active Substance: CRISABOROLE
     Indication: DYSHIDROTIC ECZEMA
     Dosage: UNK
     Route: 061
     Dates: start: 201802

REACTIONS (1)
  - Drug ineffective for unapproved indication [Unknown]
